FAERS Safety Report 7983519-6 (Version None)
Quarter: 2011Q4

REPORT INFORMATION
  Report Type: 
  Country: None (occurrence: None)
  Receive Date: 20111215
  Receipt Date: 20111201
  Transmission Date: 20120403
  Serious: Yes (Hospitalization)
  Sender: FDA-Public Use
  Company Number: DE-ROCHE-1018678

PATIENT
  Sex: Female
  Weight: 65 kg

DRUGS (3)
  1. PEGINTERFERON ALFA-2A [Suspect]
     Indication: HEPATITIS C
     Route: 058
     Dates: start: 20110628
  2. BLINDED TMC435 (NS3/4A PROTEASE INHIBITOR) [Suspect]
     Indication: HEPATITIS C
     Dosage: FREQUENCY: EVERY DAY
     Route: 048
     Dates: start: 20110628, end: 20110920
  3. COPEGUS [Suspect]
     Indication: HEPATITIS C
     Route: 048
     Dates: start: 20110628

REACTIONS (2)
  - NEUROPATHY PERIPHERAL [None]
  - GENERAL PHYSICAL CONDITION ABNORMAL [None]
